FAERS Safety Report 13554617 (Version 1)
Quarter: 2017Q2

REPORT INFORMATION
  Report Type: Spontaneous
  Country: FR (occurrence: FR)
  Receive Date: 20170517
  Receipt Date: 20170517
  Transmission Date: 20170830
  Serious: Yes (Other)
  Sender: FDA-Public Use
  Company Number: FR-009507513-1705FRA006656

PATIENT
  Age: 24 Year
  Sex: Female

DRUGS (1)
  1. NEXPLANON [Suspect]
     Active Substance: ETONOGESTREL
     Dosage: UNK
     Route: 058
     Dates: start: 20140829, end: 20170308

REACTIONS (3)
  - Depression [Unknown]
  - Depersonalisation/derealisation disorder [Unknown]
  - Anxiety [Unknown]

NARRATIVE: CASE EVENT DATE: 201408
